FAERS Safety Report 26137792 (Version 2)
Quarter: 2025Q4

REPORT INFORMATION
  Report Type: Spontaneous
  Country: EU (occurrence: EU)
  Receive Date: 20251209
  Receipt Date: 20251215
  Transmission Date: 20260117
  Serious: Yes (Hospitalization, Other)
  Sender: ABBVIE
  Company Number: EU-ABBVIE-6580575

PATIENT
  Age: 3 Year
  Sex: Male

DRUGS (1)
  1. SEVOFLURANE [Suspect]
     Active Substance: SEVOFLURANE
     Indication: Induction of anaesthesia
     Route: 055

REACTIONS (2)
  - Rhabdomyolysis [Recovered/Resolved]
  - Hyperthermia malignant [Recovered/Resolved]
